FAERS Safety Report 18522973 (Version 2)
Quarter: 2020Q4

REPORT INFORMATION
  Report Type: Report from Study
  Country: US (occurrence: US)
  Receive Date: 20201119
  Receipt Date: 20201208
  Transmission Date: 20210114
  Serious: No
  Sender: FDA-Public Use
  Company Number: US-KYOWAKIRIN-2020BKK019240

PATIENT

DRUGS (2)
  1. CRYSVITA [Suspect]
     Active Substance: BUROSUMAB-TWZA
     Indication: HEREDITARY HYPOPHOSPHATAEMIC RICKETS
     Dosage: 40 MG, 1X/2 WEEKS
     Route: 058
     Dates: start: 20200717
  2. CLARITIN [Concomitant]
     Active Substance: LORATADINE
     Indication: PRODUCT USED FOR UNKNOWN INDICATION
     Dosage: UNK
     Route: 065

REACTIONS (5)
  - Illness [Unknown]
  - Gastroenteritis viral [Unknown]
  - Pyrexia [Unknown]
  - Vomiting [Unknown]
  - Drug monitoring procedure not performed [Unknown]

NARRATIVE: CASE EVENT DATE: 2020
